FAERS Safety Report 5688268-5 (Version None)
Quarter: 2008Q1

REPORT INFORMATION
  Report Type: 
  Country: None (occurrence: None)
  Receive Date: 20080331
  Receipt Date: 20080320
  Transmission Date: 20080703
  Serious: Yes (Hospitalization, Other)
  Sender: FDA-Public Use
  Company Number: US-JNJFOC-20080304944

PATIENT
  Sex: Female
  Weight: 79.38 kg

DRUGS (9)
  1. DURAGESIC-100 [Suspect]
     Indication: RHEUMATOID ARTHRITIS
     Route: 062
  2. FENTANYL TRANSDERMAL SYSTEM [Suspect]
     Indication: RHEUMATOID ARTHRITIS
     Route: 062
  3. VALIUM [Concomitant]
     Indication: PANIC ATTACK
     Route: 048
  4. RESTORIL [Concomitant]
     Indication: INSOMNIA
     Route: 048
  5. ZOLOFT [Concomitant]
     Indication: DEPRESSION
     Route: 048
  6. CYMBALTA [Concomitant]
     Indication: DEPRESSION
     Route: 048
  7. REMICADE [Concomitant]
     Indication: RHEUMATOID ARTHRITIS
     Route: 042
  8. LEVAQUIN [Concomitant]
     Indication: INFECTION
     Route: 048
  9. METHOTREXATE [Concomitant]
     Indication: RHEUMATOID ARTHRITIS
     Route: 042

REACTIONS (23)
  - ABDOMINAL DISTENSION [None]
  - BALANCE DISORDER [None]
  - BONE DISORDER [None]
  - BREAST DISORDER [None]
  - CONTUSION [None]
  - DYSPNOEA [None]
  - EYE SWELLING [None]
  - FALL [None]
  - FUNGAL INFECTION [None]
  - HALLUCINATION [None]
  - HEADACHE [None]
  - HOSPITALISATION [None]
  - HYPERSENSITIVITY [None]
  - INAPPROPRIATE SCHEDULE OF DRUG ADMINISTRATION [None]
  - NAIL DISCOLOURATION [None]
  - NASOPHARYNGITIS [None]
  - NEURALGIA [None]
  - OEDEMA PERIPHERAL [None]
  - RASH [None]
  - RASH GENERALISED [None]
  - SECRETION DISCHARGE [None]
  - SOFT TISSUE INJURY [None]
  - TREMOR [None]
